FAERS Safety Report 7116956-2 (Version None)
Quarter: 2010Q4

REPORT INFORMATION
  Report Type: 
  Country: None (occurrence: None)
  Receive Date: 20101122
  Receipt Date: 20101111
  Transmission Date: 20110411
  Serious: Yes (Death, Hospitalization)
  Sender: FDA-Public Use
  Company Number: US-ACTELION-A-NJ2010-39190

PATIENT

DRUGS (2)
  1. BOSENTAN TABLET UNKNOWN US MG [Suspect]
     Indication: PULMONARY ARTERIAL HYPERTENSION
     Dosage: UNK
     Route: 048
     Dates: start: 20070327, end: 20101001
  2. REVATIO [Concomitant]

REACTIONS (6)
  - ADMINISTRATION SITE INFECTION [None]
  - BLOOD PRESSURE DECREASED [None]
  - CARDIAC FAILURE [None]
  - JOINT DISLOCATION [None]
  - JOINT DISLOCATION REDUCTION [None]
  - STAPHYLOCOCCAL SEPSIS [None]
